FAERS Safety Report 24580902 (Version 1)
Quarter: 2024Q4

REPORT INFORMATION
  Report Type: Spontaneous
  Country: US (occurrence: None)
  Receive Date: 20241105
  Receipt Date: 20241105
  Transmission Date: 20250115
  Serious: Yes (Death)
  Sender: Public
  Company Number: None

PATIENT
  Age: 65 Year
  Sex: Male
  Weight: 99.81 kg

DRUGS (7)
  1. REVLIMID [Suspect]
     Active Substance: LENALIDOMIDE
     Indication: Plasma cell myeloma
     Dosage: FREQUENCY : DAILY;?
     Route: 048
     Dates: start: 20200602, end: 20241102
  2. aspirin 81 mg capsule [Concomitant]
  3. FUROSEMIDE [Concomitant]
     Active Substance: FUROSEMIDE
  4. HYDROCODONE-ACETAMIN 5-325 MGD [Concomitant]
  5. ONDANSETRON 4 MG TAB [Concomitant]
  6. PANTOPRAZOLE DR 40 MG T [Concomitant]
  7. POTASSIUM CHLORIDE ER 20 MEQ TAB [Concomitant]

REACTIONS (1)
  - Death [None]

NARRATIVE: CASE EVENT DATE: 20241102
